FAERS Safety Report 25517543 (Version 3)
Quarter: 2025Q3

REPORT INFORMATION
  Report Type: Spontaneous
  Country: EU (occurrence: EU)
  Receive Date: 20250704
  Receipt Date: 20250810
  Transmission Date: 20251021
  Serious: Yes (Other)
  Sender: ALEXION PHARMACEUTICALS
  Company Number: EU-AstraZeneca-CH-00894397A

PATIENT
  Age: 82 Year
  Sex: Female

DRUGS (3)
  1. IMFINZI [Suspect]
     Active Substance: DURVALUMAB
     Indication: Cholangiocarcinoma
  2. GEMCITABINE [Concomitant]
     Active Substance: GEMCITABINE
     Indication: Cholangiocarcinoma
     Route: 065
  3. CISPLATIN [Concomitant]
     Active Substance: CISPLATIN
     Indication: Cholangiocarcinoma
     Route: 065

REACTIONS (1)
  - Malignant neoplasm progression [Unknown]

NARRATIVE: CASE EVENT DATE: 20240701
